FAERS Safety Report 19882861 (Version 1)
Quarter: 2021Q3

REPORT INFORMATION
  Report Type: Other
  Country: QA (occurrence: QA)
  Receive Date: 20210924
  Receipt Date: 20210924
  Transmission Date: 20211014
  Serious: Yes (Hospitalization, Other)
  Sender: FDA-Public Use
  Company Number: QA-SQUARE-000031

PATIENT
  Age: 32 Year
  Sex: Male

DRUGS (3)
  1. MODERNA COVID?19 VACCINE [Suspect]
     Active Substance: CX-024414
     Indication: COVID-19 IMMUNISATION
     Dosage: FIRST DOSE OF SARS?COV?2 VACCINATION
     Dates: start: 20210526
  2. ACYCLOVIR. [Suspect]
     Active Substance: ACYCLOVIR
     Indication: ENCEPHALITIS
     Dosage: FIVE?DAY COURSE OF CEFTRIAXONE?AND ACYCLOVIR
     Route: 051
  3. CEFTRIAXONE. [Suspect]
     Active Substance: CEFTRIAXONE
     Indication: ENCEPHALITIS
     Dosage: FIVE?DAY COURSE OF CEFTRIAXONE AND ACYCLOVIR

REACTIONS (6)
  - Condition aggravated [Recovered/Resolved]
  - Aggression [Recovered/Resolved]
  - Abnormal behaviour [Recovered/Resolved]
  - Drug ineffective [Unknown]
  - Disorientation [Recovered/Resolved]
  - Hallucination, auditory [Recovered/Resolved]
